FAERS Safety Report 15232722 (Version 8)
Quarter: 2020Q4

REPORT INFORMATION
  Report Type: Report from Study
  Country: JP (occurrence: JP)
  Receive Date: 20180802
  Receipt Date: 20201123
  Transmission Date: 20210113
  Serious: Yes (Hospitalization)
  Sender: FDA-Public Use
  Company Number: JP-EISAI MEDICAL RESEARCH-EC-2018-043570

PATIENT
  Age: 60 Year
  Sex: Male
  Weight: 58 kg

DRUGS (31)
  1. LENVATINIB [Suspect]
     Active Substance: LENVATINIB
     Route: 048
     Dates: start: 20190417, end: 20201112
  2. THYRADIN [Concomitant]
     Active Substance: LEVOTHYROXINE
     Indication: HYPOTHYROIDISM
     Route: 048
     Dates: start: 20180309, end: 2019
  3. MIYA-BM [Concomitant]
     Active Substance: CLOSTRIDIUM BUTYRICUM SPORES STRAIN M-55
     Indication: PROPHYLAXIS AGAINST DIARRHOEA
     Route: 048
     Dates: start: 20180518, end: 2018
  4. TRAZENTA [Concomitant]
     Active Substance: LINAGLIPTIN
     Indication: DIABETES MELLITUS
     Route: 048
     Dates: start: 20180731
  5. EVEROLIMUS. [Suspect]
     Active Substance: EVEROLIMUS
     Route: 048
     Dates: start: 20180530, end: 20190403
  6. CRESTOR [Concomitant]
     Active Substance: ROSUVASTATIN CALCIUM
     Indication: HYPERCHOLESTEROLAEMIA
     Route: 048
     Dates: start: 2011
  7. LOPERAMIDE [Concomitant]
     Active Substance: LOPERAMIDE
     Indication: DIARRHOEA
     Route: 048
     Dates: start: 20190130, end: 2019
  8. METFORMIN HYDROCHLORIDE. [Concomitant]
     Active Substance: METFORMIN HYDROCHLORIDE
     Indication: DIABETES MELLITUS
     Route: 048
     Dates: start: 20180731
  9. PHOSRIBBON [Concomitant]
     Indication: HYPOPHOSPHATAEMIA
     Route: 048
     Dates: start: 20181122, end: 2018
  10. LENVATINIB [Suspect]
     Active Substance: LENVATINIB
     Route: 048
     Dates: start: 20180530, end: 20190403
  11. ADALAT [Concomitant]
     Active Substance: NIFEDIPINE
     Indication: HYPERTENSION
     Route: 048
  12. DENOTAS [Concomitant]
     Active Substance: CALCIUM CARBONATE\CHOLECALCIFEROL\MAGNESIUM CARBONATE
     Indication: PROPHYLAXIS
     Route: 048
     Dates: start: 20180207
  13. ACUATIM [Concomitant]
     Active Substance: NADIFLOXACIN
     Indication: RASH
     Route: 061
     Dates: start: 20180511
  14. ASPARA POTASSIUM [Concomitant]
     Active Substance: POTASSIUM ASPARTATE
     Route: 048
     Dates: start: 20190417
  15. EVEROLIMUS. [Suspect]
     Active Substance: EVEROLIMUS
     Route: 048
     Dates: start: 20190417
  16. NEXIUM [Concomitant]
     Active Substance: ESOMEPRAZOLE MAGNESIUM
     Indication: PROPHYLAXIS
     Route: 048
     Dates: start: 20180518
  17. MIYA-BM [Concomitant]
     Active Substance: CLOSTRIDIUM BUTYRICUM SPORES STRAIN M-55
     Route: 048
     Dates: start: 20181227
  18. SUREPOST [Concomitant]
     Active Substance: REPAGLINIDE
     Indication: DIABETES MELLITUS
     Route: 048
     Dates: start: 20180801
  19. TRESIBA [Concomitant]
     Active Substance: INSULIN DEGLUDEC
     Indication: DIABETES MELLITUS
     Route: 058
     Dates: start: 20180803
  20. PHOSRIBBON [Concomitant]
     Route: 048
     Dates: start: 20181122, end: 2018
  21. EVEROLIMUS. [Suspect]
     Active Substance: EVEROLIMUS
     Indication: RENAL CANCER
     Route: 048
     Dates: start: 20180222, end: 20180524
  22. THYRADIN [Concomitant]
     Active Substance: LEVOTHYROXINE
     Route: 048
     Dates: start: 20181023, end: 2019
  23. THYRADIN [Concomitant]
     Active Substance: LEVOTHYROXINE
     Route: 048
     Dates: start: 20181204
  24. RINDERON VG [Concomitant]
     Active Substance: BETAMETHASONE VALERATE\GENTAMICIN SULFATE
     Indication: RASH
     Route: 061
     Dates: start: 20181023
  25. ASPARA POTASSIUM [Concomitant]
     Active Substance: POTASSIUM ASPARTATE
     Indication: HYPOKALAEMIA
     Route: 048
     Dates: start: 20190306, end: 2019
  26. RANMARK [Concomitant]
     Active Substance: DENOSUMAB
     Indication: METASTASES TO BONE
     Route: 058
     Dates: start: 20180207
  27. LENVATINIB [Suspect]
     Active Substance: LENVATINIB
     Indication: RENAL CANCER
     Route: 048
     Dates: start: 20180222, end: 20180524
  28. LOPERAMIDE [Concomitant]
     Active Substance: LOPERAMIDE
     Route: 048
     Dates: start: 20190808
  29. HAEMOLEX [Concomitant]
     Indication: HAEMORRHOIDS
     Route: 061
     Dates: start: 20181023
  30. ONEALFA [Concomitant]
     Active Substance: ALFACALCIDOL
     Indication: HYPOPHOSPHATAEMIA
     Route: 048
     Dates: start: 20181107
  31. HACHIAZULE [Concomitant]
     Indication: PROPHYLAXIS
     Route: 065

REACTIONS (2)
  - Diabetes mellitus [Not Recovered/Not Resolved]
  - Gastroenteritis [Recovered/Resolved]

NARRATIVE: CASE EVENT DATE: 20180731
